FAERS Safety Report 22137398 (Version 3)
Quarter: 2023Q2

REPORT INFORMATION
  Report Type: Report from Study
  Country: US (occurrence: US)
  Receive Date: 20230325
  Receipt Date: 20230407
  Transmission Date: 20230722
  Serious: No
  Sender: FDA-Public Use
  Company Number: US-002147023-NVSC2023US068570

PATIENT
  Sex: Female

DRUGS (3)
  1. ENTRESTO [Suspect]
     Active Substance: SACUBITRIL\VALSARTAN
     Indication: Product used for unknown indication
     Dosage: 1 DOSAGE FORM, BID
     Route: 048
     Dates: start: 20230203
  2. PREDNISONE [Suspect]
     Active Substance: PREDNISONE
     Indication: Viral infection
     Dosage: UNK
     Route: 065
  3. PREDNISONE [Suspect]
     Active Substance: PREDNISONE
     Indication: Sinusitis

REACTIONS (5)
  - Dysphonia [Unknown]
  - Viral infection [Recovering/Resolving]
  - Sinusitis [Recovering/Resolving]
  - Swelling [Recovering/Resolving]
  - Fluid retention [Unknown]
